FAERS Safety Report 7401113-2 (Version None)
Quarter: 2011Q2

REPORT INFORMATION
  Report Type: 
  Country: None (occurrence: None)
  Receive Date: 20110407
  Receipt Date: 20110318
  Transmission Date: 20111010
  Serious: Yes (Hospitalization)
  Sender: FDA-Public Use
  Company Number: US-BAYER-201031709NA

PATIENT
  Sex: Female
  Weight: 81.633 kg

DRUGS (6)
  1. OCELLA [Suspect]
     Indication: CONTRACEPTION
     Dosage: UNK
     Route: 048
     Dates: start: 20090327, end: 20090517
  2. OCELLA [Suspect]
     Indication: PREMENSTRUAL SYNDROME
  3. OCELLA [Suspect]
     Indication: ACNE
  4. YAZ [Suspect]
     Indication: CONTRACEPTION
     Dosage: UNK
     Route: 048
     Dates: start: 20080324, end: 20090301
  5. YAZ [Suspect]
     Indication: PREMENSTRUAL SYNDROME
     Dosage: UNK
     Dates: start: 20090518, end: 20090923
  6. YAZ [Suspect]
     Indication: ACNE

REACTIONS (2)
  - CHOLECYSTITIS CHRONIC [None]
  - CHOLELITHIASIS [None]
